FAERS Safety Report 6677486-5 (Version None)
Quarter: 2010Q2

REPORT INFORMATION
  Report Type: 
  Country: None (occurrence: None)
  Receive Date: 20100412
  Receipt Date: 20100407
  Transmission Date: 20101027
  Serious: Yes (Hospitalization)
  Sender: FDA-Public Use
  Company Number: B0643668A

PATIENT
  Age: 66 Year
  Sex: Female

DRUGS (1)
  1. ARIXTRA [Suspect]
     Indication: VENOUS THROMBOSIS
     Dosage: 2.5MG PER DAY
     Route: 058
     Dates: start: 20100210, end: 20100212

REACTIONS (2)
  - INCORRECT DOSE ADMINISTERED [None]
  - THROMBOCYTOPENIA [None]
